FAERS Safety Report 20920492 (Version 1)
Quarter: 2022Q2

REPORT INFORMATION
  Report Type: Spontaneous
  Country: US (occurrence: None)
  Receive Date: 20220606
  Receipt Date: 20220606
  Transmission Date: 20220721
  Serious: Yes (Other)
  Sender: FDA-Public Use
  Company Number: None

PATIENT
  Sex: Female

DRUGS (1)
  1. ADDERALL [Suspect]
     Active Substance: AMPHETAMINE ASPARTATE\AMPHETAMINE SULFATE\DEXTROAMPHETAMINE SACCHARATE\DEXTROAMPHETAMINE SULFATE

REACTIONS (10)
  - Vision blurred [None]
  - Headache [None]
  - Muscle spasms [None]
  - Balance disorder [None]
  - Fatigue [None]
  - Hypoaesthesia [None]
  - Paraesthesia [None]
  - Arthropathy [None]
  - Magnetic resonance imaging head abnormal [None]
  - Central nervous system lesion [None]
